FAERS Safety Report 5099424-1 (Version None)
Quarter: 2006Q3

REPORT INFORMATION
  Report Type: 
  Country: None (occurrence: None)
  Receive Date: 20060908
  Receipt Date: 20060829
  Transmission Date: 20061208
  Serious: Yes (Other)
  Sender: FDA-Public Use
  Company Number: PHEH2006US11087

PATIENT
  Age: 54 Year
  Sex: Male

DRUGS (5)
  1. ZOMETA [Suspect]
     Dates: start: 20040301, end: 20060401
  2. CARVEDILOL [Concomitant]
  3. CELEXA [Concomitant]
  4. ZOLPIDEM TARTRATE [Concomitant]
  5. MONOCLONAL ANTIBODIES [Suspect]
     Dosage: OPEN LABEL DENOSUMAB 120 MG
     Route: 058
     Dates: start: 20060627, end: 20060706

REACTIONS (8)
  - BONE DISORDER [None]
  - GINGIVITIS [None]
  - OSTEITIS [None]
  - OSTEONECROSIS [None]
  - PRIMARY SEQUESTRUM [None]
  - TOOTH DISORDER [None]
  - TOOTH EXTRACTION [None]
  - TOOTH FRACTURE [None]
